FAERS Safety Report 9367046 (Version 1)
Quarter: 2013Q2

REPORT INFORMATION
  Report Type: Spontaneous
  Country: FR (occurrence: FR)
  Receive Date: 20130625
  Receipt Date: 20130625
  Transmission Date: 20140414
  Serious: Yes (Hospitalization)
  Sender: FDA-Public Use
  Company Number: FR-TEVA-415019ISR

PATIENT
  Sex: Female

DRUGS (8)
  1. FUROSEMIDE TEVA 40 MG, COMPRIME SECABLE [Suspect]
     Indication: CARDIAC FAILURE
     Dosage: 2 TABLET DAILY; SCORED TABLET
     Route: 048
  2. FUROSEMIDE TEVA 40 MG, COMPRIME SECABLE [Suspect]
     Dosage: 3 TABLET DAILY; 2 TABLET IN THE MORNING AND 1 TABLET IN THE EVENING
     Dates: end: 20130607
  3. DIGOXIN [Concomitant]
  4. MICARDIS [Concomitant]
  5. AMLOR [Concomitant]
  6. AVLOCARDYL [Concomitant]
  7. METFORMIN [Concomitant]
  8. COUMADINE [Concomitant]

REACTIONS (6)
  - Oedema [Not Recovered/Not Resolved]
  - Fatigue [Unknown]
  - Nervousness [Unknown]
  - Balance disorder [Unknown]
  - Weight increased [Unknown]
  - Cardiac failure [Not Recovered/Not Resolved]
